FAERS Safety Report 25480834 (Version 3)
Quarter: 2025Q3

REPORT INFORMATION
  Report Type: Spontaneous
  Country: US (occurrence: US)
  Receive Date: 20250625
  Receipt Date: 20250704
  Transmission Date: 20251020
  Serious: No
  Sender: BIOGEN
  Company Number: US-BIOGEN-2025BI01311452

PATIENT
  Age: 35 Year
  Sex: Female

DRUGS (1)
  1. SKYCLARYS [Suspect]
     Active Substance: OMAVELOXOLONE
     Indication: Product used for unknown indication
     Route: 050
     Dates: start: 20250616, end: 202506

REACTIONS (8)
  - Somnolence [Unknown]
  - Flushing [Unknown]
  - Pruritus [Unknown]
  - Taste disorder [Unknown]
  - Neck pain [Unknown]
  - Oropharyngeal pain [Unknown]
  - Headache [Unknown]
  - Nausea [Unknown]

NARRATIVE: CASE EVENT DATE: 20250601
